FAERS Safety Report 16725005 (Version 3)
Quarter: 2020Q3

REPORT INFORMATION
  Report Type: Report from Study
  Country: AT (occurrence: AT)
  Receive Date: 20190821
  Receipt Date: 20200129
  Transmission Date: 20201104
  Serious: Yes (Death, Hospitalization)
  Sender: FDA-Public Use
  Company Number: AT-ROCHE-2384926

PATIENT
  Age: 67 Year
  Sex: Female
  Weight: 61.7 kg

DRUGS (27)
  1. DOXORUBICIN [Suspect]
     Active Substance: DOXORUBICIN
     Indication: DIFFUSE LARGE B-CELL LYMPHOMA
     Dosage: FOR 6 CYCLES?DATE OF MOST RECENT DOSE OF DOXORUBICIN OF 85 MG PRIOR TO SAE ONSET: 30/JUL/2019
     Route: 042
     Dates: start: 20190507
  2. PREDNISONE. [Suspect]
     Active Substance: PREDNISONE
     Indication: DIFFUSE LARGE B-CELL LYMPHOMA
     Dosage: FOR 6 CYCLES?DATE OF MOST RECENT DOSE OF PREDNISONE OF 100 MG PRIOR TO SAE ONSET: 30/JUL/2019
     Route: 048
     Dates: start: 20190507
  3. UROMITEXAN [Concomitant]
     Active Substance: MESNA
     Route: 048
     Dates: start: 20190507
  4. FILGRASTIM [Concomitant]
     Active Substance: FILGRASTIM
     Indication: NEUTROPENIA
     Route: 058
     Dates: start: 20190713, end: 20190717
  5. POLATUZUMAB VEDOTIN. [Suspect]
     Active Substance: POLATUZUMAB VEDOTIN
     Indication: DIFFUSE LARGE B-CELL LYMPHOMA
     Dosage: FOR 6 CYCLES, DATE OF MOST RECENT DOSE OF POLATUZUMAB VEDOTIN PRIOR TO SAE ONSET: 30/JUL/2019?LAST D
     Route: 042
     Dates: start: 20190507
  6. PASPERTIN [METOCLOPRAMIDE HYDROCHLORIDE] [Concomitant]
     Active Substance: METOCLOPRAMIDE HYDROCHLORIDE
     Indication: NAUSEA
     Route: 048
     Dates: start: 201905
  7. ZOFRAN [Concomitant]
     Active Substance: ONDANSETRON HYDROCHLORIDE
     Indication: NAUSEA
     Route: 048
     Dates: start: 201905
  8. DIBONDRIN [Concomitant]
     Active Substance: DIPHENHYDRAMINE HYDROCHLORIDE
     Route: 048
     Dates: start: 20190507
  9. FILGRASTIM [Concomitant]
     Active Substance: FILGRASTIM
     Route: 058
     Dates: start: 20190803, end: 20190807
  10. MAGNESIUM VERLA [MAGNESIUM] [Concomitant]
     Indication: HYPOMAGNESAEMIA
     Route: 048
     Dates: start: 20190528, end: 2019
  11. ZOLDEM [Concomitant]
     Active Substance: ZOLPIDEM TARTRATE
     Route: 048
     Dates: start: 20190729, end: 20190731
  12. GRANISETRON [Concomitant]
     Active Substance: GRANISETRON
     Route: 042
     Dates: start: 20190507
  13. PARACETAMOL [Concomitant]
     Active Substance: ACETAMINOPHEN
     Route: 048
     Dates: start: 20190507
  14. PLACEBO [Suspect]
     Active Substance: UNSPECIFIED INGREDIENT
     Indication: DIFFUSE LARGE B-CELL LYMPHOMA
     Dosage: FOR 6 CYCLES?DATE OF MOST RECENT DOSE: 30/JUL/2019
     Route: 042
  15. RITUXIMAB. [Suspect]
     Active Substance: RITUXIMAB
     Indication: DIFFUSE LARGE B-CELL LYMPHOMA
     Dosage: FOR 8 CYCLES?DATE OF MOST RECENT DOSE OF RITUXIMAB OF 620 MG PRIOR TO SAE ONSET: 30/JUL/2019
     Route: 041
     Dates: start: 20190507
  16. EFECTIN [Concomitant]
     Active Substance: VENLAFAXINE HYDROCHLORIDE
     Indication: DEPRESSION
     Route: 048
  17. ALLOPURINOL. [Concomitant]
     Active Substance: ALLOPURINOL
     Indication: HYPERURICAEMIA
     Route: 048
     Dates: start: 20190528
  18. DULCOLAXO [Concomitant]
     Indication: CONSTIPATION
     Route: 048
     Dates: start: 20190618
  19. CYCLOPHOSPHAMIDE. [Suspect]
     Active Substance: CYCLOPHOSPHAMIDE
     Indication: DIFFUSE LARGE B-CELL LYMPHOMA
     Dosage: FOR 6 CYCLES?DATE OF MOST RECENT DOSE OF CYCLOPHOSPHAMIDE OF 1240 MG PRIOR TO SAE ONSET: 30/JUL/2019
     Route: 042
     Dates: start: 20190507
  20. THROMBO ASS [Concomitant]
     Active Substance: ASPIRIN
     Route: 048
  21. SIMVASTATIN. [Concomitant]
     Active Substance: SIMVASTATIN
     Indication: HYPERCHOLESTEROLAEMIA
     Route: 048
  22. OLEOVIT D3 [Concomitant]
     Active Substance: CHOLECALCIFEROL
     Indication: VITAMIN D DEFICIENCY
     Route: 048
     Dates: start: 20190527
  23. MEXALEN [Concomitant]
     Active Substance: ACETAMINOPHEN
     Indication: PAIN
     Route: 048
     Dates: start: 20190528
  24. GLANDOMED [Concomitant]
     Indication: STOMATITIS
     Route: 048
     Dates: start: 20190618, end: 201909
  25. LISINOPRIL. [Concomitant]
     Active Substance: LISINOPRIL
     Indication: HYPERTENSION
     Route: 048
  26. PANTOPRAZOLE [Concomitant]
     Active Substance: PANTOPRAZOLE
     Indication: GASTRITIS
     Route: 048
     Dates: start: 20190619
  27. FRAGMIN [Concomitant]
     Active Substance: DALTEPARIN SODIUM
     Indication: THROMBOSIS
     Route: 058
     Dates: start: 20190729, end: 20190731

REACTIONS (1)
  - Pneumonia [Fatal]

NARRATIVE: CASE EVENT DATE: 20190816
